FAERS Safety Report 16014067 (Version 1)
Quarter: 2019Q1

REPORT INFORMATION
  Report Type: Spontaneous
  Country: BR (occurrence: BR)
  Receive Date: 20190227
  Receipt Date: 20190227
  Transmission Date: 20190418
  Serious: Yes (Other)
  Sender: FDA-Public Use
  Company Number: BR-PFIZER INC-2019082702

PATIENT
  Sex: Male

DRUGS (1)
  1. LIPITOR [Suspect]
     Active Substance: ATORVASTATIN CALCIUM
     Dosage: 20 MG, UNK
     Dates: start: 2004

REACTIONS (4)
  - Joint effusion [Unknown]
  - Arthralgia [Not Recovered/Not Resolved]
  - Gait disturbance [Unknown]
  - Acute myocardial infarction [Unknown]

NARRATIVE: CASE EVENT DATE: 201808
